FAERS Safety Report 9626877 (Version 1)
Quarter: 2013Q4

REPORT INFORMATION
  Report Type: Spontaneous
  Country: US (occurrence: None)
  Receive Date: 20131011
  Receipt Date: 20131011
  Transmission Date: 20140711
  Serious: Yes (Congenital Anomaly)
  Sender: FDA-Public Use
  Company Number: ADR-2013UNK165

PATIENT
  Sex: 0

DRUGS (4)
  1. TENOFOVIR DISOPROXIL FUMARATE [Suspect]
     Dosage: 1 COURSE
  2. ABACARIR+LAMIVUDINE+ZIDOVUDINE (TRIZIVIR) [Concomitant]
  3. RALTEGRAVIR (ISENTRESS) [Concomitant]
  4. RIOTONAVIR (NORVIR) [Concomitant]

REACTIONS (3)
  - Spine malformation [None]
  - Oesophageal atresia [None]
  - Hemivertebra [None]
